FAERS Safety Report 11423169 (Version 1)
Quarter: 2015Q3

REPORT INFORMATION
  Report Type: Spontaneous
  Country: US (occurrence: None)
  Receive Date: 20150826
  Receipt Date: 20150826
  Transmission Date: 20151125
  Serious: Yes (Other)
  Sender: FDA-Public Use
  Company Number: None

PATIENT
  Age: 45 Year
  Sex: Male
  Weight: 113 kg

DRUGS (2)
  1. ROCURONIUM [Suspect]
     Active Substance: ROCURONIUM BROMIDE
     Indication: ATRIAL FIBRILLATION
     Dates: start: 20150803
  2. ROCURONIUM [Suspect]
     Active Substance: ROCURONIUM BROMIDE
     Indication: CARDIAC ABLATION
     Dates: start: 20150803

REACTIONS (2)
  - Inadequate analgesia [None]
  - Drug effect incomplete [None]

NARRATIVE: CASE EVENT DATE: 20150803
